FAERS Safety Report 4293999-8 (Version None)
Quarter: 2004Q1

REPORT INFORMATION
  Report Type: 
  Country: None (occurrence: None)
  Receive Date: 20040212
  Receipt Date: 20021017
  Transmission Date: 20041129
  Serious: Yes (Hospitalization, Disabling)
  Sender: FDA-Public Use
  Company Number: WAES 0210USA01799

PATIENT
  Age: 42 Year
  Sex: Female

DRUGS (2)
  1. VIOXX [Suspect]
     Indication: ARTHRALGIA
     Route: 048
     Dates: start: 20020913, end: 20020921
  2. VIOXX [Suspect]
     Indication: JOINT INJURY
     Route: 048
     Dates: start: 20020913, end: 20020921

REACTIONS (11)
  - ARTERIOVENOUS MALFORMATION [None]
  - BLOOD PRESSURE DECREASED [None]
  - CEREBROVASCULAR ACCIDENT [None]
  - CONVULSION [None]
  - DRUG HYPERSENSITIVITY [None]
  - HAEMORRHAGE INTRACRANIAL [None]
  - HYPERVOLAEMIA [None]
  - MEMORY IMPAIRMENT [None]
  - OEDEMA PERIPHERAL [None]
  - RENAL CYST [None]
  - WEIGHT INCREASED [None]
